FAERS Safety Report 7799034-9 (Version None)
Quarter: 2011Q4

REPORT INFORMATION
  Report Type: 
  Country: None (occurrence: None)
  Receive Date: 20111005
  Receipt Date: 20111005
  Transmission Date: 20120403
  Serious: Yes (Life-Threatening, Other)
  Sender: FDA-Public Use
  Company Number: None

PATIENT
  Age: 88 Year
  Sex: Male
  Weight: 77.1115 kg

DRUGS (13)
  1. ACTOS [Suspect]
     Indication: DIABETES MELLITUS
     Dosage: 15MG DAILY APPROXIMATELY 15 TO 18 MONTHS
  2. GABAPENTIN [Concomitant]
  3. PENTOXIFYLLINE [Concomitant]
  4. XALATAN [Concomitant]
  5. AMLODIPINE [Concomitant]
  6. SIMVASTATIN [Concomitant]
  7. FLUTICASONE SPRAY [Concomitant]
  8. AZOPT [Concomitant]
  9. DOXAZOSIN MESYLATE [Concomitant]
  10. LISINOPRIL [Concomitant]
  11. AZOPT [Concomitant]
  12. LIMBREL [Concomitant]
  13. ALCORTIN GEL [Concomitant]

REACTIONS (1)
  - BLADDER NEOPLASM [None]
